FAERS Safety Report 23677067 (Version 2)
Quarter: 2024Q2

REPORT INFORMATION
  Report Type: Spontaneous
  Country: JP (occurrence: JP)
  Receive Date: 20240327
  Receipt Date: 20240524
  Transmission Date: 20240716
  Serious: Yes (Hospitalization, Other)
  Sender: FDA-Public Use
  Company Number: JP-ferring-EVA202400416FERRINGPH

PATIENT

DRUGS (2)
  1. DESMOPRESSIN ACETATE [Suspect]
     Active Substance: DESMOPRESSIN ACETATE
     Indication: Diabetes insipidus
     Dosage: 120 UG, 1 TIME DAILY
     Route: 048
     Dates: end: 20240313
  2. DESMOPRESSIN [Concomitant]
     Active Substance: DESMOPRESSIN
     Indication: Diabetes insipidus
     Route: 065

REACTIONS (6)
  - Altered state of consciousness [Recovered/Resolved]
  - Hypernatraemia [Unknown]
  - Femur fracture [Unknown]
  - Rhabdomyolysis [Unknown]
  - Pustule [Unknown]
  - Nephropathy [Unknown]

NARRATIVE: CASE EVENT DATE: 20240101
